FAERS Safety Report 24607087 (Version 1)
Quarter: 2024Q4

REPORT INFORMATION
  Report Type: Spontaneous
  Country: US (occurrence: None)
  Receive Date: 20241108
  Receipt Date: 20241108
  Transmission Date: 20250115
  Serious: No
  Sender: Public
  Company Number: None

PATIENT
  Age: 73 Year
  Sex: Male

DRUGS (3)
  1. ROSUVASTATIN CALCIUM [Suspect]
     Active Substance: ROSUVASTATIN CALCIUM
     Indication: Hyperlipidaemia
     Dosage: FREQUENCY : AT BEDTIME;?
     Dates: end: 20240731
  2. FENOFIBRATE [Suspect]
     Active Substance: FENOFIBRATE
  3. NIFEDIPINE [Suspect]
     Active Substance: NIFEDIPINE

REACTIONS (6)
  - Neck pain [None]
  - Chronic kidney disease [None]
  - Rhabdomyolysis [None]
  - Acute kidney injury [None]
  - Hypokalaemia [None]
  - Hypomagnesaemia [None]

NARRATIVE: CASE EVENT DATE: 20240731
